FAERS Safety Report 11057150 (Version 1)
Quarter: 2015Q2

REPORT INFORMATION
  Report Type: Spontaneous
  Country: US (occurrence: US)
  Receive Date: 20150422
  Receipt Date: 20150422
  Transmission Date: 20150821
  Serious: No
  Sender: FDA-Public Use
  Company Number: US-PFIZER INC-2015134648

PATIENT
  Age: 55 Year
  Sex: Female
  Weight: 84 kg

DRUGS (1)
  1. SULFASALAZINE. [Suspect]
     Active Substance: SULFASALAZINE
     Indication: ARTHRITIS
     Dosage: 500 MG, 2X/DAY
     Route: 048

REACTIONS (1)
  - Musculoskeletal stiffness [Not Recovered/Not Resolved]
